FAERS Safety Report 4658288-8 (Version None)
Quarter: 2005Q2

REPORT INFORMATION
  Report Type: 
  Country: None (occurrence: None)
  Receive Date: 20050510
  Receipt Date: 20050510
  Transmission Date: 20051028
  Serious: Yes (Hospitalization)
  Sender: FDA-Public Use
  Company Number: None

PATIENT
  Age: 45 Year
  Sex: Female

DRUGS (2)
  1. CLARITHROMYCIN [Suspect]
     Indication: COUGH
     Dosage: 500MG   QD   ORAL
     Route: 048
     Dates: start: 20040830, end: 20040903
  2. CLARITHROMYCIN [Suspect]
     Indication: SPUTUM DISCOLOURED
     Dosage: 500MG   QD   ORAL
     Route: 048
     Dates: start: 20040830, end: 20040903

REACTIONS (5)
  - ABNORMAL BEHAVIOUR [None]
  - DELIRIUM [None]
  - HEADACHE [None]
  - HYPOGLYCAEMIA [None]
  - MEMORY IMPAIRMENT [None]
